FAERS Safety Report 7777353-X (Version None)
Quarter: 2011Q3

REPORT INFORMATION
  Report Type: 
  Country: None (occurrence: None)
  Receive Date: 20110926
  Receipt Date: 20110914
  Transmission Date: 20111222
  Serious: Yes (Hospitalization, Other)
  Sender: FDA-Public Use
  Company Number: US-JNJFOC-20110907098

PATIENT
  Sex: Female
  Weight: 123.38 kg

DRUGS (6)
  1. CARDIZEM CD [Concomitant]
     Indication: HYPERTENSION
     Route: 048
  2. INDERAL LA [Concomitant]
     Indication: HYPERTENSION
     Route: 048
  3. TOPAMAX [Suspect]
     Indication: MIGRAINE PROPHYLAXIS
     Route: 048
     Dates: end: 20110801
  4. SYNTHROID [Concomitant]
     Indication: HYPERTENSION
     Route: 048
  5. INDERAL LA [Concomitant]
     Indication: MIGRAINE
     Route: 048
  6. EFFEXOR XR [Concomitant]
     Indication: MIGRAINE
     Route: 048

REACTIONS (5)
  - OBESITY [None]
  - OEDEMA PERIPHERAL [None]
  - BODY HEIGHT DECREASED [None]
  - DRUG INEFFECTIVE [None]
  - HYPERTENSION [None]
